FAERS Safety Report 22115376 (Version 1)
Quarter: 2023Q1

REPORT INFORMATION
  Report Type: Spontaneous
  Country: US (occurrence: None)
  Receive Date: 20230318
  Receipt Date: 20230318
  Transmission Date: 20230418
  Serious: Yes (Other)
  Sender: FDA-Public Use
  Company Number: None

PATIENT
  Age: 64 Year
  Weight: 105.3 kg

DRUGS (1)
  1. WEGOVY [Suspect]
     Active Substance: SEMAGLUTIDE
     Dates: start: 20221102, end: 20230204

REACTIONS (5)
  - Vitreous floaters [None]
  - Dizziness [None]
  - Nausea [None]
  - Fall [None]
  - Diplopia [None]

NARRATIVE: CASE EVENT DATE: 20230105
